FAERS Safety Report 5835558-9 (Version None)
Quarter: 2008Q3

REPORT INFORMATION
  Report Type: 
  Country: None (occurrence: None)
  Receive Date: 20080804
  Receipt Date: 20080718
  Transmission Date: 20090109
  Serious: Yes (Hospitalization, Other)
  Sender: FDA-Public Use
  Company Number: 08-001195

PATIENT
  Age: 40 Year
  Sex: Female

DRUGS (3)
  1. ERYC [Suspect]
     Indication: AMNIORRHOEA
  2. ERYC [Suspect]
     Indication: CAESAREAN SECTION
  3. ERYC [Suspect]
     Indication: PROPHYLAXIS

REACTIONS (8)
  - CLOSTRIDIAL INFECTION [None]
  - COLECTOMY [None]
  - DISSEMINATED INTRAVASCULAR COAGULATION [None]
  - DRUG EXPOSURE DURING PREGNANCY [None]
  - PREGNANCY [None]
  - RENAL FAILURE [None]
  - RESPIRATORY FAILURE [None]
  - SEPTIC SHOCK [None]
